FAERS Safety Report 15885561 (Version 2)
Quarter: 2020Q1

REPORT INFORMATION
  Report Type: Spontaneous
  Country: GB (occurrence: GB)
  Receive Date: 20190129
  Receipt Date: 20200306
  Transmission Date: 20200409
  Serious: Yes (Disabling, Other)
  Sender: FDA-Public Use
  Company Number: GB-TEVA-2019-GB-1003327

PATIENT
  Age: 71 Year
  Sex: Female
  Weight: 58.51 kg

DRUGS (4)
  1. FLUTICASONE PROPIONATE. [Concomitant]
     Active Substance: FLUTICASONE PROPIONATE
     Route: 045
  2. ATORVASTATIN [Concomitant]
     Active Substance: ATORVASTATIN
  3. ADCAL-D3 [Concomitant]
     Active Substance: CALCIUM CARBONATE\CHOLECALCIFEROL
  4. FEXOFENADINE HYDROCHLORIDE. [Suspect]
     Active Substance: FEXOFENADINE HYDROCHLORIDE
     Indication: HYPERSENSITIVITY
     Route: 048
     Dates: start: 20181211, end: 20190101

REACTIONS (2)
  - Deafness [Recovered/Resolved]
  - Secretion discharge [Recovered/Resolved with Sequelae]

NARRATIVE: CASE EVENT DATE: 20181222
